FAERS Safety Report 6638409-8 (Version None)
Quarter: 2010Q1

REPORT INFORMATION
  Report Type: 
  Country: None (occurrence: None)
  Receive Date: 20100317
  Receipt Date: 20100311
  Transmission Date: 20100710
  Serious: Yes (Hospitalization)
  Sender: FDA-Public Use
  Company Number: US-ABBOTT-10P-163-0631801-00

PATIENT
  Age: 75 Year
  Sex: Male

DRUGS (2)
  1. DEPAKOTE ER [Suspect]
     Indication: BIPOLAR DISORDER
  2. DEPAKOTE ER [Suspect]
     Indication: MANIA

REACTIONS (2)
  - CHOLELITHIASIS [None]
  - PANCREATITIS [None]
